FAERS Safety Report 4416171-7 (Version None)
Quarter: 2004Q2

REPORT INFORMATION
  Report Type: 
  Country: None (occurrence: None)
  Receive Date: 20040623
  Receipt Date: 20040520
  Transmission Date: 20050107
  Serious: No
  Sender: FDA-Public Use
  Company Number: WAES 0405USA01542

PATIENT

DRUGS (1)
  1. INVANZ [Suspect]
     Indication: INFECTION
     Dosage: IV
     Route: 042

REACTIONS (4)
  - AGITATION [None]
  - CONFUSIONAL STATE [None]
  - HALLUCINATION, VISUAL [None]
  - MENTAL DISORDER DUE TO A GENERAL MEDICAL CONDITION [None]
